FAERS Safety Report 10542840 (Version 1)
Quarter: 2014Q4

REPORT INFORMATION
  Report Type: Spontaneous
  Country: US (occurrence: None)
  Receive Date: 20141023
  Receipt Date: 20141023
  Transmission Date: 20150529
  Serious: Yes (Other)
  Sender: FDA-Public Use
  Company Number: None

PATIENT
  Age: 72 Year
  Sex: Female

DRUGS (1)
  1. AMPHOTERICIN B. [Suspect]
     Active Substance: AMPHOTERICIN B
     Route: 042

REACTIONS (3)
  - Muscular weakness [None]
  - Abdominal pain lower [None]
  - Infusion related reaction [None]

NARRATIVE: CASE EVENT DATE: 20140704
